FAERS Safety Report 6631805-4 (Version None)
Quarter: 2010Q1

REPORT INFORMATION
  Report Type: 
  Country: None (occurrence: None)
  Receive Date: 20100312
  Receipt Date: 20100303
  Transmission Date: 20100710
  Serious: Yes (Other)
  Sender: FDA-Public Use
  Company Number: GB-JNJFOC-20090402367

PATIENT
  Age: 74 Year
  Sex: Male
  Weight: 68 kg

DRUGS (7)
  1. REMICADE [Suspect]
     Indication: RHEUMATOID ARTHRITIS
     Route: 042
  2. PREDNISOLONE [Concomitant]
  3. CALCICHEW [Concomitant]
  4. DIHYDROCODEINE BITARTRATE INJ [Concomitant]
  5. FOSAMAX [Concomitant]
  6. LANSOPRAZOLE [Concomitant]
  7. MELOXICAM [Concomitant]

REACTIONS (3)
  - ACTINIC KERATOSIS [None]
  - BASAL CELL CARCINOMA [None]
  - PSEUDOLYMPHOMA [None]
